FAERS Safety Report 9989693 (Version 1)
Quarter: 2014Q1

REPORT INFORMATION
  Report Type: Report from Study
  Country: US (occurrence: US)
  Receive Date: 20140310
  Receipt Date: 20140310
  Transmission Date: 20141002
  Serious: No
  Sender: FDA-Public Use
  Company Number: US-ABBVIE-13P-163-1130153-00

PATIENT
  Age: 18 Year
  Sex: Male

DRUGS (3)
  1. HUMIRA [Suspect]
     Indication: CROHN^S DISEASE
     Dates: start: 201112, end: 201203
  2. HUMIRA [Suspect]
     Dates: start: 201205
  3. METHOTREXATE [Concomitant]
     Indication: CROHN^S DISEASE

REACTIONS (3)
  - Pyrexia [Recovered/Resolved]
  - Rift Valley fever [Recovered/Resolved]
  - Upper respiratory tract infection [Recovered/Resolved]
